FAERS Safety Report 5207005-1 (Version None)
Quarter: 2007Q1

REPORT INFORMATION
  Report Type: 
  Country: None (occurrence: None)
  Receive Date: 20070112
  Receipt Date: 20070102
  Transmission Date: 20070707
  Serious: Yes (Hospitalization)
  Sender: FDA-Public Use
  Company Number: GB-NOVOPROD-246524

PATIENT
  Sex: Male
  Weight: 114.3 kg

DRUGS (13)
  1. NOVORAPID FLEXPEN [Suspect]
     Indication: DIABETES MELLITUS INADEQUATE CONTROL
     Route: 058
     Dates: start: 20050302, end: 20050828
  2. GLICLAZIDE [Concomitant]
     Dosage: 320 MG, QD
     Dates: start: 20010509, end: 20050825
  3. METFORMIN HCL [Concomitant]
     Dosage: 2000 MG, QD
     Dates: start: 20020903
  4. IBUPROFEN [Concomitant]
     Dosage: 400 MG, QD
     Dates: start: 20050417, end: 20050417
  5. ATORVASTATIN CALCIUM [Concomitant]
     Dosage: 10 MG, QD
     Dates: start: 20020617
  6. DOXAZOSIN MESYLATE [Concomitant]
     Dosage: 2 MG, QD
     Dates: start: 20050112
  7. RAMIPRIL [Concomitant]
     Dosage: 10 MG, QD
     Dates: start: 20020925
  8. LIPANTIL [Concomitant]
     Dosage: 267 MG, QD
     Dates: start: 20020925
  9. ATENOLOL [Concomitant]
     Dosage: 50 MG, QD
     Dates: start: 20010420
  10. FRUSEMIDE [Concomitant]
     Dosage: 40 MG, QD
     Dates: start: 20050524, end: 20050531
  11. FRUSEMIDE [Concomitant]
     Dosage: 40 MG, QD
     Dates: start: 20050816, end: 20050823
  12. FENOFIBRATE [Concomitant]
     Dosage: 267 MG, QD
     Dates: start: 20050823
  13. NOVOMIXA? 30 [Concomitant]
     Dosage: 24 IU, QD
     Dates: start: 20050825

REACTIONS (1)
  - CELLULITIS [None]
